FAERS Safety Report 13460371 (Version 2)
Quarter: 2017Q2

REPORT INFORMATION
  Report Type: Spontaneous
  Country: FR (occurrence: FR)
  Receive Date: 20170420
  Receipt Date: 20170503
  Transmission Date: 20170830
  Serious: Yes (Other)
  Sender: FDA-Public Use
  Company Number: FR-ORION CORPORATION ORION PHARMA-TREX2017-1158

PATIENT
  Age: 57 Year
  Sex: Female

DRUGS (2)
  1. VOLTARENE [Concomitant]
     Active Substance: DICLOFENAC SODIUM
     Route: 065
  2. IMETH [Suspect]
     Active Substance: METHOTREXATE SODIUM
     Indication: PSORIASIS
     Route: 048
     Dates: start: 201302

REACTIONS (1)
  - Deafness unilateral [Recovering/Resolving]

NARRATIVE: CASE EVENT DATE: 201703
